FAERS Safety Report 10219339 (Version 1)
Quarter: 2014Q2

REPORT INFORMATION
  Report Type: Spontaneous
  Country: FR (occurrence: None)
  Receive Date: 20140603
  Receipt Date: 20140603
  Transmission Date: 20141212
  Serious: Yes (Hospitalization)
  Sender: FDA-Public Use
  Company Number: AXC-2014-000344

PATIENT
  Age: 58 Year
  Sex: Female

DRUGS (8)
  1. PYLERA (BISMUTH SUBCITRATE POTASSIUM, METRONIDAZOLE, TETRACYCLINE HYDROCHLORIDE) CAPSULE [Suspect]
     Indication: HELICOBACTER GASTRITIS
     Route: 048
     Dates: start: 201403, end: 201403
  2. MOPRAL (OMEPRAZOLE) [Suspect]
     Indication: HELICOBACTER GASTRITIS
     Route: 048
     Dates: start: 201403, end: 201403
  3. BIPERIDYS (DOMPERIDONE) (DOMPERIDONE) [Suspect]
     Indication: HELICOBACTER GASTRITIS
     Route: 048
     Dates: start: 201403, end: 201403
  4. DITROPAN (OXYBUTYNIN HYDROCHLORIDE) [Concomitant]
  5. LYRICA (PREGABALIN) [Concomitant]
  6. TRAMADOL (TRAMADOL) [Concomitant]
  7. PARACETAMOL (PARACETAMOL) [Concomitant]
  8. KESTIN (EBASTINE) [Concomitant]

REACTIONS (3)
  - Thrombocytopenia [None]
  - Contusion [None]
  - Immune thrombocytopenic purpura [None]
